FAERS Safety Report 20180061 (Version 1)
Quarter: 2021Q4

REPORT INFORMATION
  Report Type: Spontaneous
  Country: US (occurrence: US)
  Receive Date: 20211214
  Receipt Date: 20211214
  Transmission Date: 20220303
  Serious: Yes (Other)
  Sender: FDA-Public Use
  Company Number: US-IBSA PHARMA INC.-2021CHE000062

PATIENT

DRUGS (2)
  1. LEVOTHYROXINE SODIUM [Suspect]
     Active Substance: LEVOTHYROXINE SODIUM
     Indication: Product used for unknown indication
     Dosage: 125 ?G, QD
     Dates: start: 2021
  2. LEVOTHYROXINE SODIUM [Suspect]
     Active Substance: LEVOTHYROXINE SODIUM
     Dosage: 150 ?G, QD
     Dates: start: 2021

REACTIONS (4)
  - Hip arthroplasty [Recovering/Resolving]
  - Weight increased [Unknown]
  - Blood thyroid stimulating hormone abnormal [Unknown]
  - Thyroxine free abnormal [Unknown]

NARRATIVE: CASE EVENT DATE: 20210729
